FAERS Safety Report 9780103 (Version 1)
Quarter: 2013Q4

REPORT INFORMATION
  Report Type: Spontaneous
  Country: CH (occurrence: CH)
  Receive Date: 20131223
  Receipt Date: 20131223
  Transmission Date: 20140711
  Serious: Yes (Other)
  Sender: FDA-Public Use
  Company Number: CH-ELI_LILLY_AND_COMPANY-CH201312007044

PATIENT
  Age: 21 Year
  Sex: Female

DRUGS (3)
  1. HUMALOG LISPRO [Suspect]
     Indication: TYPE 1 DIABETES MELLITUS
     Dosage: 8 IU, TID
     Route: 064
  2. VELMETIA [Suspect]
     Indication: DIABETES MELLITUS
     Dosage: 1000/50 MG
     Route: 064
     Dates: start: 2012, end: 201212
  3. LANTUS [Suspect]
     Indication: TYPE 1 DIABETES MELLITUS
     Dosage: 32 IU, TID
     Route: 064

REACTIONS (1)
  - Exposure during pregnancy [Recovered/Resolved]
